FAERS Safety Report 6881015-0 (Version None)
Quarter: 2010Q3

REPORT INFORMATION
  Report Type: 
  Country: None (occurrence: None)
  Receive Date: 20100727
  Receipt Date: 20100716
  Transmission Date: 20110219
  Serious: No
  Sender: FDA-Public Use
  Company Number: US-BIOGENIDEC-2010BI022512

PATIENT
  Age: 57 Year
  Sex: Female

DRUGS (4)
  1. TYSABRI [Suspect]
     Indication: MULTIPLE SCLEROSIS
     Route: 042
     Dates: start: 20071207, end: 20091221
  2. TYSABRI [Suspect]
     Route: 042
     Dates: start: 20100414
  3. FLUOXETINE [Concomitant]
     Indication: DEPRESSION
  4. PRILOSEC [Concomitant]
     Indication: GASTROOESOPHAGEAL REFLUX DISEASE

REACTIONS (3)
  - HYPERGLYCAEMIA [None]
  - INFUSION RELATED REACTION [None]
  - PARALYSIS [None]
